FAERS Safety Report 9559280 (Version 2)
Quarter: 2013Q3

REPORT INFORMATION
  Report Type: Spontaneous
  Country: US (occurrence: None)
  Receive Date: 20130924
  Receipt Date: 20130927
  Transmission Date: 20140515
  Serious: Yes (Hospitalization, Other)
  Sender: FDA-Public Use
  Company Number: 2013US002393

PATIENT
  Age: 53 Year
  Sex: Male
  Weight: 95 kg

DRUGS (7)
  1. ICLUSIG [Suspect]
     Indication: CHRONIC MYELOID LEUKAEMIA
     Route: 048
     Dates: start: 20130211, end: 20130829
  2. METAMUCIL (PSYLLIUM HYDROPHILLIC MUCILLOID) [Concomitant]
  3. LISINOPRIL (LISINOPRIL) [Concomitant]
  4. METOPROLOL XL (METOPROLOL) [Concomitant]
  5. ALBUTEROL (ALBUTEROL) [Concomitant]
  6. NTG [Concomitant]
  7. BENADRYL (DIPHENHYDRAMINE HYDROCHLORIDE) [Concomitant]

REACTIONS (6)
  - Cardiomyopathy [None]
  - Supraventricular tachycardia [None]
  - Cardiac failure congestive [None]
  - Malaise [None]
  - Fatigue [None]
  - Ejection fraction decreased [None]
